FAERS Safety Report 16164318 (Version 3)
Quarter: 2019Q2

REPORT INFORMATION
  Report Type: Spontaneous
  Country: GR (occurrence: GR)
  Receive Date: 20190405
  Receipt Date: 20190606
  Transmission Date: 20190711
  Serious: Yes (Life-Threatening, Hospitalization, Disabling, Other)
  Sender: FDA-Public Use
  Company Number: GR-ASTRAZENECA-2019SE52930

PATIENT
  Age: 75 Year
  Sex: Female

DRUGS (3)
  1. T4 [Concomitant]
     Active Substance: LEVOTHYROXINE
  2. STATIN [Concomitant]
     Active Substance: UNSPECIFIED INGREDIENT
  3. IMFINZI [Suspect]
     Active Substance: DURVALUMAB
     Indication: NON-SMALL CELL LUNG CANCER
     Dosage: 10 MG/KG
     Route: 042
     Dates: start: 20190318

REACTIONS (2)
  - Hemiparesis [Not Recovered/Not Resolved]
  - Cerebrovascular accident [Recovered/Resolved]
